FAERS Safety Report 24682085 (Version 1)
Quarter: 2024Q4

REPORT INFORMATION
  Report Type: Spontaneous
  Country: GB (occurrence: GB)
  Receive Date: 20241130
  Receipt Date: 20241130
  Transmission Date: 20250115
  Serious: Yes (Other)
  Sender: BOEHRINGER INGELHEIM
  Company Number: None

PATIENT
  Age: 54 Year
  Sex: Male
  Weight: 91 kg

DRUGS (20)
  1. EMPAGLIFLOZIN [Suspect]
     Active Substance: EMPAGLIFLOZIN
     Indication: Ill-defined disorder
     Dates: start: 20220513
  2. AMOXICILLIN\CLAVULANATE POTASSIUM [Concomitant]
     Active Substance: AMOXICILLIN\CLAVULANATE POTASSIUM
     Indication: Ill-defined disorder
     Dates: start: 20240917, end: 20240924
  3. ALOGLIPTIN [Concomitant]
     Active Substance: ALOGLIPTIN
     Indication: Ill-defined disorder
     Dates: start: 20211117
  4. ASPIRIN [Concomitant]
     Active Substance: ASPIRIN
     Indication: Ill-defined disorder
     Dates: start: 20211117
  5. BETAMETHASONE VALERATE [Concomitant]
     Active Substance: BETAMETHASONE VALERATE
     Indication: Ill-defined disorder
     Dosage: APPLY FOR 7 DAYS
     Dates: start: 20211117
  6. CITALOPRAM [Concomitant]
     Active Substance: CITALOPRAM
     Indication: Ill-defined disorder
     Dosage: TAKE TWO DAILY
     Dates: start: 20211117, end: 20241125
  7. FAMOTIDINE [Concomitant]
     Active Substance: FAMOTIDINE
     Indication: Ill-defined disorder
     Dosage: 1 TO BE TAKEN AT NIGHT
     Dates: start: 20211117, end: 20241125
  8. NITROGLYCERIN [Concomitant]
     Active Substance: NITROGLYCERIN
     Indication: Ill-defined disorder
     Dosage: ONE PUFF AS NEEDED
     Dates: start: 20211117
  9. IVABRADINE [Concomitant]
     Active Substance: IVABRADINE
     Indication: Ill-defined disorder
     Dosage: (HALF THE DOSE WHEN TAKING...
     Dates: start: 20211117
  10. LOSARTAN [Concomitant]
     Active Substance: LOSARTAN
     Indication: Ill-defined disorder
     Dates: start: 20211117, end: 20241125
  11. RANOLAZINE [Concomitant]
     Active Substance: RANOLAZINE
     Indication: Ill-defined disorder
     Dates: start: 20211117
  12. EZETIMIBE [Concomitant]
     Active Substance: EZETIMIBE
     Indication: Ill-defined disorder
     Dates: start: 20220112
  13. ISOSORBIDE MONONITRATE [Concomitant]
     Active Substance: ISOSORBIDE MONONITRATE
     Indication: Ill-defined disorder
     Dosage: 2 OM 1 EACH AFTERNOON
     Dates: start: 20221129, end: 20241125
  14. FLUCONAZOLE [Concomitant]
     Active Substance: FLUCONAZOLE
     Indication: Ill-defined disorder
     Dosage: - FOR FLARE-UP ONLY AND STOP MED...
     Route: 048
     Dates: start: 20230314
  15. ATORVASTATIN [Concomitant]
     Active Substance: ATORVASTATIN
     Indication: Ill-defined disorder
     Dates: start: 20231030
  16. METFORMIN [Concomitant]
     Active Substance: METFORMIN HYDROCHLORIDE
     Indication: Ill-defined disorder
     Dosage: TAKE TWO MORNING AND EVENING
     Dates: start: 20240328
  17. IBUPROFEN [Concomitant]
     Active Substance: IBUPROFEN
     Indication: Ill-defined disorder
     Dosage: APPLY IF REQUIRED
     Dates: start: 20240606
  18. COCODAMOL [Concomitant]
     Active Substance: ACETAMINOPHEN\CODEINE PHOSPHATE
     Indication: Ill-defined disorder
     Dosage: 1-2  UP TO IF REQUIRED (STOP T...
     Dates: start: 20240813
  19. LANSOPRAZOLE [Concomitant]
     Active Substance: LANSOPRAZOLE
     Indication: Ill-defined disorder
     Dosage: TAKE ONE
  20. SERTRALINE [Concomitant]
     Active Substance: SERTRALINE HYDROCHLORIDE
     Indication: Ill-defined disorder
     Dosage: ONE TABLET
     Dates: start: 20241125

REACTIONS (5)
  - Fournier^s gangrene [Unknown]
  - Genital infection [Recovered/Resolved]
  - Pain [Unknown]
  - Erythema [Unknown]
  - Genital swelling [Unknown]
